FAERS Safety Report 8538509-1 (Version None)
Quarter: 2012Q3

REPORT INFORMATION
  Report Type: 
  Country: None (occurrence: None)
  Receive Date: 20120726
  Receipt Date: 20120718
  Transmission Date: 20120928
  Serious: No
  Sender: FDA-Public Use
  Company Number: US-B.I. PHARMACEUTICALS,INC./RIDGEFIELD-2012-BP-16040BP

PATIENT
  Age: 81 Year
  Sex: Male

DRUGS (9)
  1. SPIRIVA [Suspect]
     Indication: PULMONARY FIBROSIS
     Dosage: 18 MCG
     Route: 055
     Dates: start: 20120401, end: 20120701
  2. SPIRIVA [Suspect]
     Dosage: 18 MCG
     Route: 055
     Dates: start: 20120701
  3. NAC DIAGNOSTIC REAGENT [Concomitant]
     Indication: PULMONARY FIBROSIS
     Dosage: 1200 MG
     Route: 048
  4. VERAPAMIL [Concomitant]
     Indication: HYPERTENSION
     Dosage: 180 MG
     Route: 048
  5. PLAVIX [Concomitant]
     Indication: CORONARY ARTERY DISEASE
     Dosage: 75 MG
     Route: 048
  6. SIMVASTATIN [Concomitant]
     Indication: BLOOD CHOLESTEROL INCREASED
     Dosage: 40 MG
     Route: 048
  7. TRANDOLAPRIL [Concomitant]
     Indication: HYPERTENSION
     Dosage: 2 MG
     Route: 048
  8. PREDNISONE [Concomitant]
     Indication: PULMONARY FIBROSIS
     Dosage: 10 MG
     Route: 048
  9. AVODART [Concomitant]

REACTIONS (2)
  - DRY MOUTH [None]
  - DYSGEUSIA [None]
